FAERS Safety Report 25100836 (Version 1)
Quarter: 2025Q1

REPORT INFORMATION
  Report Type: Report from Study
  Country: US (occurrence: US)
  Receive Date: 20250320
  Receipt Date: 20250320
  Transmission Date: 20250408
  Serious: Yes (Hospitalization)
  Sender: BAUSCH AND LOMB
  Company Number: US-BAUSCH-BL-2025-003752

PATIENT
  Sex: Male

DRUGS (1)
  1. XIFAXAN [Suspect]
     Active Substance: RIFAXIMIN
     Indication: Depression
     Route: 065
     Dates: start: 2023

REACTIONS (3)
  - Hospitalisation [Unknown]
  - Product prescribing issue [Unknown]
  - Product use in unapproved indication [Unknown]
